FAERS Safety Report 8444326-3 (Version None)
Quarter: 2012Q2

REPORT INFORMATION
  Report Type: 
  Country: None (occurrence: None)
  Receive Date: 20120611
  Receipt Date: 20120525
  Transmission Date: 20120825
  Serious: Yes (Life-Threatening)
  Sender: FDA-Public Use
  Company Number: 2011SGN00146

PATIENT
  Age: 65 Year
  Sex: Male
  Weight: 72.4 kg

DRUGS (30)
  1. ACYCLOVIR [Concomitant]
  2. SODIUM CHLORIDE 0.9% [Concomitant]
  3. ZAROXOLYN [Concomitant]
  4. AMIODARONE (AMIODARONE HYDROCHLORIDE) [Concomitant]
  5. COMBIVENT [Concomitant]
  6. VANCOMYCIN [Concomitant]
  7. PROPOFOL [Concomitant]
  8. ALLOPURINOL [Concomitant]
  9. HYDROCORTISON (HYDROCORTISONE SODIUM SUCCINATE) [Concomitant]
  10. MYCAMINE (MICAFUNGIN SODIUM) [Concomitant]
  11. TESSALON [Concomitant]
  12. OSELTAMIVIR PHOSPHATE [Concomitant]
  13. PANTOPRAZOLE [Concomitant]
  14. XOPENEX [Concomitant]
  15. COLACE (DOCUSATE SODIUM) [Concomitant]
  16. NEUPOGEN [Concomitant]
  17. ACTIGALL [Concomitant]
  18. AMINO ACIDS [Concomitant]
  19. BENADRYL [Concomitant]
  20. INSULIN REGULAR (INSULIN BOVINE) [Concomitant]
  21. BACTRIM [Concomitant]
  22. POTASSIUM CHLORIDE [Concomitant]
  23. ATROVENT [Concomitant]
  24. INSULIN LISPRO (INSULIN LISPRO) [Concomitant]
  25. ADCETRIS [Suspect]
     Indication: HODGKIN'S DISEASE
     Dosage: 1.2 MG/KG, Q21D, INTRAVENOUS
     Route: 042
     Dates: start: 20110715
  26. MERREM [Concomitant]
  27. METOPROLOL TARTRATE [Concomitant]
  28. SPIRONOLACTONE [Concomitant]
  29. ACETAMINOPHEN [Concomitant]
  30. VICODIN [Concomitant]

REACTIONS (12)
  - AORTIC ARTERIOSCLEROSIS [None]
  - INTERNATIONAL NORMALISED RATIO INCREASED [None]
  - ELECTROCARDIOGRAM PR SHORTENED [None]
  - WHITE BLOOD CELL COUNT DECREASED [None]
  - PLATELET COUNT DECREASED [None]
  - HAEMOGLOBIN DECREASED [None]
  - BLOOD GLUCOSE INCREASED [None]
  - BLOOD LACTATE DEHYDROGENASE INCREASED [None]
  - PULMONARY ALVEOLAR HAEMORRHAGE [None]
  - CANDIDA TEST POSITIVE [None]
  - BLOOD BILIRUBIN INCREASED [None]
  - BLOOD ALKALINE PHOSPHATASE INCREASED [None]
